FAERS Safety Report 5673633-2 (Version None)
Quarter: 2008Q2

REPORT INFORMATION
  Report Type: 
  Country: None (occurrence: None)
  Receive Date: 20080225
  Receipt Date: 20070112
  Transmission Date: 20081010
  Serious: Yes (Other)
  Sender: FDA-Public Use
  Company Number: WAES 0512USA03160

PATIENT
  Age: 55 Year
  Sex: Male
  Weight: 88.4514 kg

DRUGS (23)
  1. ZOCOR [Suspect]
     Dosage: 20 MG/PO
     Route: 048
     Dates: start: 20030202
  2. ,, [Suspect]
  3. ALTACE [Concomitant]
  4. ASACOL [Concomitant]
  5. AVAPRO [Concomitant]
  6. CELEBREX [Concomitant]
  7. DIOVAN [Concomitant]
  8. GLUCOPHAGE [Concomitant]
  9. GUAIFENEX [Concomitant]
  10. HUMALOG [Concomitant]
  11. HYDROCODONE BITARTRATE AND ACETAMINOPHEN [Concomitant]
  12. IMDUR [Concomitant]
  13. LANTUS [Concomitant]
  14. LEVAQUIN [Concomitant]
  15. NEXIUM [Concomitant]
  16. NITROSTAT [Concomitant]
  17. PEPCID [Concomitant]
  18. ASPIRIN [Concomitant]
  19. ATENOLOL [Concomitant]
  20. FAMOTIDINE [Concomitant]
  21. FUROSEMIDE [Concomitant]
  22. IRON (UNSPECIFIED) [Concomitant]
  23. METHOCARBAMOL [Concomitant]

REACTIONS (9)
  - ANAEMIA [None]
  - DYSPNOEA [None]
  - NEPHROSCLEROSIS [None]
  - OEDEMA PERIPHERAL [None]
  - PAIN IN EXTREMITY [None]
  - RASH [None]
  - RENAL FAILURE CHRONIC [None]
  - RHABDOMYOLYSIS [None]
  - URINE FLOW DECREASED [None]
